FAERS Safety Report 15074694 (Version 1)
Quarter: 2018Q2

REPORT INFORMATION
  Report Type: Spontaneous
  Country: US (occurrence: US)
  Receive Date: 20180627
  Receipt Date: 20180627
  Transmission Date: 20180711
  Serious: Yes (Hospitalization, Other)
  Sender: FDA-Public Use
  Company Number: US-SAOL THERAPEUTICS-2017SAO01172

PATIENT
  Age: 65 Year
  Sex: Female

DRUGS (8)
  1. BACLOFEN. [Suspect]
     Active Substance: BACLOFEN
     Dosage: 1.24 ?G, \DAY
     Route: 037
     Dates: start: 20170705
  2. FENTANYL. [Suspect]
     Active Substance: FENTANYL
     Dosage: 515.3 ?G, \DAY
     Route: 037
     Dates: start: 20170209, end: 20170705
  3. BUPIVICAINE [Suspect]
     Active Substance: BUPIVACAINE
     Dosage: 12.88 ?G, \DAY
     Route: 037
     Dates: start: 20170209, end: 20170705
  4. CLONIDINE. [Suspect]
     Active Substance: CLONIDINE
     Dosage: 51.53 ?G, \DAY
     Route: 037
     Dates: start: 20170209, end: 20170705
  5. CLONIDINE. [Suspect]
     Active Substance: CLONIDINE
     Dosage: 2.48 ?G, \DAY
     Route: 037
     Dates: start: 20170705
  6. BACLOFEN. [Suspect]
     Active Substance: BACLOFEN
     Dosage: 25.77 ?G, \DAY
     Route: 037
     Dates: start: 20170209, end: 20170705
  7. FENTANYL. [Suspect]
     Active Substance: FENTANYL
     Dosage: 24.8 ?G, \DAY
     Route: 037
     Dates: start: 20170705
  8. BUPIVICAINE [Suspect]
     Active Substance: BUPIVACAINE
     Dosage: 0.62 ?G, \DAY
     Route: 037
     Dates: start: 20170705

REACTIONS (4)
  - Unresponsive to stimuli [Unknown]
  - Incorrect route of drug administration [Unknown]
  - Respiratory depression [Unknown]
  - Complication associated with device [Unknown]

NARRATIVE: CASE EVENT DATE: 20170705
